FAERS Safety Report 9148580 (Version 1)
Quarter: 2013Q1

REPORT INFORMATION
  Report Type: Spontaneous
  Country: US (occurrence: None)
  Receive Date: 20130228
  Receipt Date: 20130228
  Transmission Date: 20140127
  Serious: Yes (Life-Threatening)
  Sender: FDA-Public Use
  Company Number: None

PATIENT
  Age: 83 Year
  Sex: Female

DRUGS (4)
  1. SOTALOL [Suspect]
     Route: 048
     Dates: start: 20130220, end: 20130226
  2. METOPROLOL TARTRATE [Concomitant]
  3. FUROSEMIDE [Concomitant]
  4. RIVAROXABAN [Concomitant]

REACTIONS (3)
  - Cardiac failure [None]
  - Ventricular fibrillation [None]
  - Unresponsive to stimuli [None]
